FAERS Safety Report 14775338 (Version 1)
Quarter: 2018Q2

REPORT INFORMATION
  Report Type: Spontaneous
  Country: DE (occurrence: DE)
  Receive Date: 20180418
  Receipt Date: 20180418
  Transmission Date: 20180711
  Serious: Yes (Congenital Anomaly, Other)
  Sender: FDA-Public Use
  Company Number: DE-OTSUKA-2018_009287

PATIENT
  Age: 1 Day
  Sex: Male
  Weight: 2.89 kg

DRUGS (1)
  1. ABILIFY [Suspect]
     Active Substance: ARIPIPRAZOLE
     Indication: SCHIZOPHRENIA
     Dosage: 15 MG, QD
     Route: 064
     Dates: start: 20170307, end: 20171122

REACTIONS (4)
  - Apparent life threatening event [Recovered/Resolved]
  - Neonatal respiratory distress [Recovered/Resolved]
  - Cerebral haemorrhage [Recovering/Resolving]
  - Ventricular septal defect [Not Recovered/Not Resolved]

NARRATIVE: CASE EVENT DATE: 20171122
